FAERS Safety Report 7969524-4 (Version None)
Quarter: 2011Q4

REPORT INFORMATION
  Report Type: 
  Country: None (occurrence: None)
  Receive Date: 20111212
  Receipt Date: 20111207
  Transmission Date: 20120403
  Serious: No
  Sender: FDA-Public Use
  Company Number: US-PFIZER INC-2011299141

PATIENT
  Sex: Female

DRUGS (6)
  1. AMBIEN [Concomitant]
  2. KLONOPIN [Concomitant]
  3. LYRICA [Suspect]
     Indication: DEPRESSION
     Dosage: 25 MG, 2X/DAY
  4. MOBIC [Concomitant]
  5. LYRICA [Suspect]
     Indication: FIBROMYALGIA
     Dosage: 25 MG, 1X/DAY
  6. LYRICA [Suspect]
     Indication: ANXIETY

REACTIONS (2)
  - WEIGHT INCREASED [None]
  - DRUG INEFFECTIVE [None]
